FAERS Safety Report 9142577 (Version 2)
Quarter: 2013Q2

REPORT INFORMATION
  Report Type: Spontaneous
  Country: US (occurrence: US)
  Receive Date: 20130306
  Receipt Date: 20130523
  Transmission Date: 20140414
  Serious: Yes (Other)
  Sender: FDA-Public Use
  Company Number: US-BAYER-2013-027860

PATIENT
  Age: 39 Year
  Sex: Female
  Weight: 70.3 kg

DRUGS (2)
  1. MIRENA [Suspect]
     Indication: CONTRACEPTION
     Dosage: 20 MCG/24HR, CONT
     Route: 015
     Dates: start: 20130108
  2. COGENTIN [Concomitant]
     Dosage: UNK

REACTIONS (3)
  - Vaginal haemorrhage [Recovered/Resolved]
  - Dry skin [Recovered/Resolved]
  - Hypomenorrhoea [Recovered/Resolved]
